FAERS Safety Report 5697313-2 (Version None)
Quarter: 2008Q2

REPORT INFORMATION
  Report Type: 
  Country: None (occurrence: None)
  Receive Date: 20080408
  Receipt Date: 20070823
  Transmission Date: 20081010
  Serious: No
  Sender: FDA-Public Use
  Company Number: US-BAYER-US-2007-031896

PATIENT
  Age: 34 Year
  Sex: Female
  Weight: 56 kg

DRUGS (2)
  1. YASMIN [Suspect]
     Indication: ACNE
     Route: 048
     Dates: start: 20050101
  2. EFFEXOR [Concomitant]

REACTIONS (1)
  - ACNE [None]
